FAERS Safety Report 24603199 (Version 1)
Quarter: 2024Q4

REPORT INFORMATION
  Report Type: Spontaneous
  Country: CN (occurrence: CN)
  Receive Date: 20241111
  Receipt Date: 20241111
  Transmission Date: 20250114
  Serious: Yes (Other)
  Sender: BAXTER
  Company Number: None

PATIENT
  Age: 51 Year
  Sex: Female
  Weight: 71.5 kg

DRUGS (4)
  1. CYCLOPHOSPHAMIDE [Suspect]
     Active Substance: CYCLOPHOSPHAMIDE
     Indication: Breast cancer female
     Dosage: 1.1 G, ONE TIME IN ONE DAY, D1, DILUTED WITH 50 ML OF 0.9% SODIUM CHLORIDE
     Route: 041
     Dates: start: 20241013, end: 20241013
  2. SODIUM CHLORIDE [Suspect]
     Active Substance: SODIUM CHLORIDE
     Indication: Medication dilution
     Dosage: (0.9%) 50 ML, ONE TIME IN ONE DAY, USED TO DILUTE 1.1 G OF CYCLOPHOSPHAMIDE
     Route: 041
     Dates: start: 20241013, end: 20241013
  3. DEXTROSE [Suspect]
     Active Substance: DEXTROSE MONOHYDRATE
     Indication: Medication dilution
     Dosage: (5%) 150 ML, ONE TIME IN ONE DAY, USED TO DILUTED WITH 50 MG OF DOXORUBICIN HYDROCHLORIDE LIPOSOMAL
     Route: 041
     Dates: start: 20241013, end: 20241013
  4. DOXORUBICIN HYDROCHLORIDE [Suspect]
     Active Substance: DOXORUBICIN HYDROCHLORIDE
     Indication: Breast cancer female
     Dosage: 50 MG, ONE TIME IN ONE DAY, D1, DILUTED WITH 250 ML OF 5% GLUCOSE (PREPARED BY SELF)
     Route: 041
     Dates: start: 20241013, end: 20241013

REACTIONS (2)
  - Leukopenia [Recovering/Resolving]
  - Liver injury [Recovering/Resolving]

NARRATIVE: CASE EVENT DATE: 20241030
